FAERS Safety Report 23505001 (Version 1)
Quarter: 2024Q1

REPORT INFORMATION
  Report Type: Spontaneous
  Country: JP (occurrence: JP)
  Receive Date: 20240209
  Receipt Date: 20240209
  Transmission Date: 20240410
  Serious: No
  Sender: FDA-Public Use
  Company Number: None

PATIENT
  Age: 60 Year
  Sex: Male

DRUGS (18)
  1. GABAPENTIN [Interacting]
     Active Substance: GABAPENTIN
     Indication: Neuralgia
     Dosage: 400 MILLIGRAM, QD (200 MG IN THE MORNING AND 200 MG IN THE LATE AFTERNOON)
     Route: 048
     Dates: start: 20081021
  2. GABAPENTIN [Interacting]
     Active Substance: GABAPENTIN
     Dosage: 200 MILLIGRAM
     Route: 048
     Dates: start: 20081025
  3. GABAPENTIN [Interacting]
     Active Substance: GABAPENTIN
     Dosage: 200 MG/D (100 MG IN THE MORNING AND 100 MG LATE AFTERNOON)
     Route: 048
     Dates: start: 20081027
  4. FLUNITRAZEPAM [Interacting]
     Active Substance: FLUNITRAZEPAM
     Indication: Insomnia
     Dosage: 0.5 MILLIGRAM HS (30 YEARS AGO)
     Route: 048
  5. FLUNITRAZEPAM [Interacting]
     Active Substance: FLUNITRAZEPAM
     Dosage: 0.5 MILLIGRAM HS (BEFORE BEDTIME)
     Route: 048
  6. FLUNITRAZEPAM [Interacting]
     Active Substance: FLUNITRAZEPAM
     Dosage: 0.5 MILLIGRAM HS (BEFORE BEDTIME)
     Route: 048
     Dates: start: 20081021
  7. FLUNITRAZEPAM [Interacting]
     Active Substance: FLUNITRAZEPAM
     Dosage: 0.5 MILLIGRAM HS (BEFORE BEDTIME)
     Route: 048
     Dates: start: 20081025
  8. FLUNITRAZEPAM [Interacting]
     Active Substance: FLUNITRAZEPAM
     Dosage: 0.5 MILLIGRAM HS (BEFORE BEDTIME)
     Route: 048
     Dates: start: 20081027
  9. VALPROATE SODIUM [Interacting]
     Active Substance: VALPROATE SODIUM
     Indication: Epilepsy
     Dosage: 1200 MILLIGRAM, QD (30 YEARS AGO)
     Route: 048
  10. VALPROATE SODIUM [Interacting]
     Active Substance: VALPROATE SODIUM
     Indication: Pain
     Dosage: 1200 MILLIGRAM, QD
     Route: 048
  11. VALPROATE SODIUM [Interacting]
     Active Substance: VALPROATE SODIUM
     Indication: Muscular weakness
     Dosage: 1200 MILLIGRAM, QD
     Route: 048
     Dates: start: 20081021
  12. VALPROATE SODIUM [Interacting]
     Active Substance: VALPROATE SODIUM
     Indication: Paralysis
     Dosage: 1200 MILLIGRAM, QD
     Route: 048
     Dates: start: 20081025
  13. VALPROATE SODIUM [Interacting]
     Active Substance: VALPROATE SODIUM
     Dosage: 1200 MILLIGRAM, QD
     Route: 048
     Dates: start: 20081027
  14. LOXOPROFEN [Concomitant]
     Active Substance: LOXOPROFEN
     Indication: Product used for unknown indication
     Dosage: 180 MILLIGRAM (30 YEARS AGO)
     Route: 065
  15. LOXOPROFEN [Concomitant]
     Active Substance: LOXOPROFEN
     Dosage: 180 MILLIGRAM
     Route: 065
  16. LOXOPROFEN [Concomitant]
     Active Substance: LOXOPROFEN
     Dosage: 180 MILLIGRAM
     Route: 065
     Dates: start: 20081021
  17. LOXOPROFEN [Concomitant]
     Active Substance: LOXOPROFEN
     Dosage: 180 MILLIGRAM
     Route: 065
     Dates: start: 20081025
  18. LOXOPROFEN [Concomitant]
     Active Substance: LOXOPROFEN
     Dosage: 180 MILLIGRAM
     Route: 065
     Dates: start: 20081027

REACTIONS (3)
  - Gait disturbance [Recovered/Resolved]
  - Drug level increased [Unknown]
  - Drug interaction [Unknown]

NARRATIVE: CASE EVENT DATE: 20081001
